FAERS Safety Report 20808330 (Version 1)
Quarter: 2022Q2

REPORT INFORMATION
  Report Type: Spontaneous
  Country: US (occurrence: None)
  Receive Date: 20220509
  Receipt Date: 20220509
  Transmission Date: 20220720
  Serious: Yes (Death)
  Sender: FDA-Public Use
  Company Number: None

PATIENT
  Age: 73 Year
  Sex: Male

DRUGS (1)
  1. SOTROVIMAB [Suspect]
     Active Substance: SOTROVIMAB
     Indication: Upper respiratory tract infection
     Dosage: FREQUENCY : ONCE;?
     Route: 042
     Dates: start: 20220122, end: 20220122

REACTIONS (4)
  - COVID-19 [None]
  - Hypotension [None]
  - Acute kidney injury [None]
  - Cardio-respiratory arrest [None]

NARRATIVE: CASE EVENT DATE: 20220201
